FAERS Safety Report 19000853 (Version 2)
Quarter: 2021Q4

REPORT INFORMATION
  Report Type: Spontaneous
  Country: None (occurrence: GB)
  Receive Date: 20210312
  Receipt Date: 20211030
  Transmission Date: 20220303
  Serious: Yes (Other)
  Sender: FDA-Public Use
  Company Number: GB-MHRA-EYC 00242309

PATIENT
  Age: 40 Year
  Sex: Female
  Weight: 50.8 kg

DRUGS (1)
  1. AMOXICILLIN\CLAVULANIC ACID [Suspect]
     Active Substance: AMOXICILLIN\CLAVULANIC ACID
     Indication: Urinary tract infection
     Route: 048

REACTIONS (4)
  - Asthenia [Unknown]
  - Paraesthesia [Unknown]
  - Dizziness [Unknown]
  - Diarrhoea [Unknown]
